FAERS Safety Report 13932015 (Version 2)
Quarter: 2017Q3

REPORT INFORMATION
  Report Type: Spontaneous
  Country: IT (occurrence: IT)
  Receive Date: 20170904
  Receipt Date: 20170919
  Transmission Date: 20171127
  Serious: Yes (Hospitalization, Other)
  Sender: FDA-Public Use
  Company Number: IT-AUROBINDO-AUR-APL-2017-39646

PATIENT
  Age: 33 Year
  Sex: Female

DRUGS (6)
  1. FLUOXETINE [Interacting]
     Active Substance: FLUOXETINE HYDROCHLORIDE
     Indication: PRODUCT USED FOR UNKNOWN INDICATION
     Route: 048
  2. TACHIDOL [Interacting]
     Active Substance: ACETAMINOPHEN\CODEINE PHOSPHATE
     Indication: PRODUCT USED FOR UNKNOWN INDICATION
     Route: 048
  3. QUETIAPINE FILM-COATED TABLET [Suspect]
     Active Substance: QUETIAPINE
     Indication: PRODUCT USED FOR UNKNOWN INDICATION
     Dosage: 1500 MG TOTAL
     Route: 048
  4. LORAZEPAM TABLETS [Interacting]
     Active Substance: LORAZEPAM
     Indication: PRODUCT USED FOR UNKNOWN INDICATION
     Route: 048
  5. AUGMENTIN [Interacting]
     Active Substance: AMOXICILLIN\CLAVULANATE POTASSIUM
     Indication: PRODUCT USED FOR UNKNOWN INDICATION
     Route: 048
  6. CARBOLITHIUM [Interacting]
     Active Substance: LITHIUM CARBONATE
     Indication: PRODUCT USED FOR UNKNOWN INDICATION
     Dosage: 1500 MG TOTAL
     Route: 048

REACTIONS (6)
  - Leukocytosis [Recovered/Resolved]
  - Drug abuse [Recovered/Resolved]
  - Induced abortion failed [Recovered/Resolved]
  - Intentional overdose [Recovered/Resolved]
  - Protein C increased [Recovered/Resolved]
  - Alcohol interaction [Recovered/Resolved]

NARRATIVE: CASE EVENT DATE: 20170713
